FAERS Safety Report 25382929 (Version 1)
Quarter: 2025Q2

REPORT INFORMATION
  Report Type: Spontaneous
  Country: US (occurrence: US)
  Receive Date: 20250602
  Receipt Date: 20250602
  Transmission Date: 20250716
  Serious: Yes (Other)
  Sender: AMGEN
  Company Number: US-AMGEN-USASP2025100232

PATIENT

DRUGS (1)
  1. PREDNISONE [Suspect]
     Active Substance: PREDNISONE
     Indication: Immunosuppressant drug therapy
     Dosage: 7.5 MILLIGRAM, QD
     Route: 065

REACTIONS (12)
  - Adverse event [Unknown]
  - Transplant rejection [Unknown]
  - Haemobilia [Unknown]
  - Hepatic vascular fistula [Unknown]
  - Type 2 diabetes mellitus [Unknown]
  - Drug intolerance [Unknown]
  - Atrioventricular block [Unknown]
  - Arrhythmia [Unknown]
  - Treatment noncompliance [Unknown]
  - Procedural nausea [Unknown]
  - Procedural pain [Unknown]
  - Blood glucose increased [Unknown]
